FAERS Safety Report 20469640 (Version 2)
Quarter: 2022Q2

REPORT INFORMATION
  Report Type: Report from Study
  Country: US (occurrence: US)
  Receive Date: 20220214
  Receipt Date: 20220513
  Transmission Date: 20220721
  Serious: Yes (Hospitalization)
  Sender: FDA-Public Use
  Company Number: US-PHARMACOVIGILANCE-US-KAD-21-00055

PATIENT

DRUGS (1)
  1. REZUROCK [Suspect]
     Active Substance: BELUMOSUDIL
     Indication: Chronic graft versus host disease
     Dosage: 200 MILLIGRAMS, DAILY, ORALLY, AT BEDTIME
     Route: 048
     Dates: start: 20210916, end: 20211007

REACTIONS (3)
  - Surgery [Recovered/Resolved]
  - Lung disorder [Unknown]
  - Product dose omission issue [Unknown]
